FAERS Safety Report 18078522 (Version 4)
Quarter: 2020Q4

REPORT INFORMATION
  Report Type: Report from Study
  Country: CA (occurrence: CA)
  Receive Date: 20200728
  Receipt Date: 20201120
  Transmission Date: 20210113
  Serious: Yes (Hospitalization, Other)
  Sender: FDA-Public Use
  Company Number: CA-TOLMAR, INC.-20CA021780

PATIENT
  Age: 63 Year
  Sex: Male

DRUGS (2)
  1. ELIGARD [Suspect]
     Active Substance: LEUPROLIDE ACETATE
     Indication: PROSTATE CANCER
     Dosage: 30 MG, Q 4 MONTH
     Route: 058
     Dates: start: 20200608
  2. ELIGARD [Suspect]
     Active Substance: LEUPROLIDE ACETATE
     Dosage: 30 MG, Q 4 MONTH
     Route: 058
     Dates: start: 20200928

REACTIONS (17)
  - Urinary retention [Not Recovered/Not Resolved]
  - Migraine [Not Recovered/Not Resolved]
  - Deafness transitory [Recovering/Resolving]
  - Vomiting [Not Recovered/Not Resolved]
  - Cerebral haemorrhage [Unknown]
  - Hypertension [Not Recovered/Not Resolved]
  - Dysuria [Not Recovered/Not Resolved]
  - Fatigue [Recovering/Resolving]
  - Urinary tract obstruction [Recovering/Resolving]
  - Headache [Unknown]
  - Pollakiuria [Not Recovered/Not Resolved]
  - Peripheral swelling [Unknown]
  - Gait disturbance [Unknown]
  - Tinnitus [Recovering/Resolving]
  - Chills [Recovering/Resolving]
  - Urine output decreased [Not Recovered/Not Resolved]
  - Insomnia [Not Recovered/Not Resolved]

NARRATIVE: CASE EVENT DATE: 202006
